FAERS Safety Report 8004865-6 (Version None)
Quarter: 2011Q4

REPORT INFORMATION
  Report Type: 
  Country: None (occurrence: None)
  Receive Date: 20111223
  Receipt Date: 20111221
  Transmission Date: 20120403
  Serious: Yes (Other)
  Sender: FDA-Public Use
  Company Number: US-ROXANE LABORATORIES, INC.-2011-EU-01267GD

PATIENT
  Age: 16 Year
  Sex: Female

DRUGS (19)
  1. OXYCODONE HCL [Suspect]
     Indication: PAIN
     Dosage: HIGH-DOSE OPIOIDS
     Route: 048
  2. HYDROXYUREA [Concomitant]
     Indication: SICKLE CELL ANAEMIA
  3. ACETAZOLAMIDE [Concomitant]
     Indication: HEADACHE
     Route: 048
  4. MORPHINE [Suspect]
     Indication: PAIN
     Dosage: HIGH-DOSE OPIOIDS
     Route: 048
  5. HYDROMORPHONE HCL [Suspect]
     Indication: PAIN
     Dosage: HIGH-DOSE OPIOIDS
     Route: 048
  6. IBUPROFEN [Concomitant]
     Indication: PAIN
  7. AMYTRIPTILLINE [Concomitant]
     Indication: NEURALGIA
  8. CHOLECALCIFEROL [Concomitant]
     Indication: VITAMIN D DEFICIENCY
     Dosage: 14285.7143 U
  9. PREGABALIN [Concomitant]
     Indication: NEURALGIA
  10. CYPROHEPTADINE HCL [Concomitant]
     Indication: HEADACHE
  11. LANSOPRAZOLE [Concomitant]
     Indication: ABDOMINAL PAIN
  12. CHOLECALCIFEROL [Concomitant]
     Dosage: 7142.8571 U
  13. KETOROLAC TROMETHAMINE [Concomitant]
     Indication: PAIN
  14. GABAPENTIN [Concomitant]
     Indication: NEURALGIA
  15. LANSOPRAZOLE [Concomitant]
     Indication: GASTROOESOPHAGEAL REFLUX DISEASE
  16. METHADONE HCL [Suspect]
     Indication: PAIN
     Dosage: HIGH-DOSE OPIOIDS
     Route: 048
  17. TRAMADOL HCL [Suspect]
     Indication: PAIN
     Dosage: HIGH-DOSE OPIOIDS
     Route: 048
  18. BACLOFEN [Concomitant]
     Indication: MUSCLE SPASMS
  19. CALCIUM CARBONATE [Concomitant]
     Dosage: 1000 MG
     Route: 048

REACTIONS (1)
  - HYPERAESTHESIA [None]
